FAERS Safety Report 6177299-7 (Version None)
Quarter: 2009Q2

REPORT INFORMATION
  Report Type: 
  Country: None (occurrence: None)
  Receive Date: 20090430
  Receipt Date: 20090430
  Transmission Date: 20091009
  Serious: Yes (Death, Life-Threatening, Hospitalization, Disabling, Other)
  Sender: FDA-Public Use
  Company Number: None

PATIENT
  Sex: Female
  Weight: 77.5651 kg

DRUGS (2)
  1. DIGOXIN [Suspect]
     Indication: ATRIAL FIBRILLATION
     Dosage: 0.125 MG 1/DAY PO
     Route: 048
     Dates: start: 20081020, end: 20090128
  2. DIGOXIN [Suspect]
     Indication: CORONARY ARTERY DISEASE
     Dosage: 0.125 MG 1/DAY PO
     Route: 048
     Dates: start: 20081020, end: 20090128

REACTIONS (15)
  - CARDIAC FAILURE CONGESTIVE [None]
  - CARDIO-RESPIRATORY ARREST [None]
  - FLUID OVERLOAD [None]
  - FOOT OPERATION [None]
  - HAEMODIALYSIS [None]
  - HEART RATE DECREASED [None]
  - IATROGENIC INJURY [None]
  - NAUSEA [None]
  - OVERDOSE [None]
  - OXYGEN SATURATION DECREASED [None]
  - PRODUCT QUALITY ISSUE [None]
  - RENAL FAILURE ACUTE [None]
  - TREATMENT FAILURE [None]
  - UNEVALUABLE EVENT [None]
  - VISION BLURRED [None]
